FAERS Safety Report 14007509 (Version 1)
Quarter: 2017Q3

REPORT INFORMATION
  Report Type: Spontaneous
  Country: GB (occurrence: GB)
  Receive Date: 20170925
  Receipt Date: 20170925
  Transmission Date: 20171128
  Serious: Yes (Other)
  Sender: FDA-Public Use
  Company Number: GB-EMD SERONO-8183408

PATIENT
  Age: 16 Year
  Sex: Male

DRUGS (2)
  1. SAIZEN [Suspect]
     Active Substance: SOMATROPIN
     Indication: GROWTH HORMONE DEFICIENCY
  2. DEXAMETASON                        /00016001/ [Concomitant]
     Indication: PRODUCT USED FOR UNKNOWN INDICATION

REACTIONS (7)
  - Haemangioma [Unknown]
  - Hepatic lesion [Unknown]
  - Meningioma [Unknown]
  - Muscular weakness [Unknown]
  - Aneurysmal bone cyst [Unknown]
  - Bone lesion [Unknown]
  - Paraesthesia [Unknown]
